FAERS Safety Report 12405914 (Version 1)
Quarter: 2016Q2

REPORT INFORMATION
  Report Type: Report from Study
  Country: IT (occurrence: IT)
  Receive Date: 20160526
  Receipt Date: 20160526
  Transmission Date: 20160815
  Serious: Yes (Hospitalization, Other)
  Sender: FDA-Public Use
  Company Number: IT-AMGEN-ITACT2015083511

PATIENT
  Age: 63 Year
  Sex: Male

DRUGS (10)
  1. POMALIDOMIDE [Suspect]
     Active Substance: POMALIDOMIDE
     Indication: PLASMA CELL MYELOMA
     Dosage: 4 MG, PER CHEMO REGIM
     Route: 048
     Dates: start: 20150806
  2. VALACYCLOVIR [Concomitant]
     Active Substance: VALACYCLOVIR HYDROCHLORIDE
     Dosage: 500 MG, BID
     Dates: start: 20150728
  3. ALLOPURINOL. [Concomitant]
     Active Substance: ALLOPURINOL
     Dosage: 300 MG, QD
     Dates: start: 20150728
  4. NEBIVOLOL. [Concomitant]
     Active Substance: NEBIVOLOL
     Dosage: 1/2 TABLET
  5. DUROGESIC [Concomitant]
     Active Substance: FENTANYL
     Dosage: 25 MUG, PATCH
  6. EUTIROX [Concomitant]
     Active Substance: LEVOTHYROXINE SODIUM
     Dosage: 100 MUG, MONDAY TO SUNDAY
  7. CARFILZOMIB [Suspect]
     Active Substance: CARFILZOMIB
     Indication: PLASMA CELL MYELOMA
     Dosage: 20 MG/M2, PER CHEMO REGIM
     Route: 042
     Dates: start: 20150806
  8. DEXAMETHASONE. [Suspect]
     Active Substance: DEXAMETHASONE
     Indication: PLASMA CELL MYELOMA
     Dosage: 20 MG, PER CHEMO REGIM
     Route: 042
     Dates: start: 20150806
  9. PANTOPRAZOLE [Concomitant]
     Active Substance: PANTOPRAZOLE SODIUM
     Dosage: UNK
  10. LAMIVUDINE. [Concomitant]
     Active Substance: LAMIVUDINE
     Dosage: 100 MG, QD
     Dates: start: 20150728

REACTIONS (2)
  - Hepatitis B [Unknown]
  - Pyrexia [Not Recovered/Not Resolved]

NARRATIVE: CASE EVENT DATE: 20150808
